APPROVED DRUG PRODUCT: ARALEN HYDROCHLORIDE
Active Ingredient: CHLOROQUINE HYDROCHLORIDE
Strength: EQ 40MG BASE/ML
Dosage Form/Route: INJECTABLE;INJECTION
Application: N006002 | Product #002
Applicant: SANOFI AVENTIS US LLC
Approved: Approved Prior to Jan 1, 1982 | RLD: No | RS: No | Type: DISCN